FAERS Safety Report 10758167 (Version 1)
Quarter: 2015Q1

REPORT INFORMATION
  Report Type: Spontaneous
  Country: US (occurrence: None)
  Receive Date: 20150202
  Receipt Date: 20150202
  Transmission Date: 20150721
  Serious: No
  Sender: FDA-Public Use
  Company Number: None

PATIENT
  Age: 79 Year
  Sex: Female
  Weight: 65.77 kg

DRUGS (6)
  1. PROBIOITIC [Concomitant]
  2. FLAGYL [Suspect]
     Active Substance: METRONIDAZOLE\METRONIDAZOLE HYDROCHLORIDE
     Indication: PRODUCT USED FOR UNKNOWN INDICATION
     Dosage: AROUND 1-12 10 DAYS LATER, 500MG, 3 PILLS A DAY, 3 DAY, 10 DAY SUPPLY, BY MOUTH
     Route: 048
  3. V-D [Concomitant]
  4. SUGAR REGULATOR [Concomitant]
  5. CALCIUM [Concomitant]
     Active Substance: CALCIUM
  6. SKIN-HAIR-NAIL VIT [Concomitant]

REACTIONS (4)
  - Decreased appetite [None]
  - Weight decreased [None]
  - Nausea [None]
  - Abdominal pain upper [None]

NARRATIVE: CASE EVENT DATE: 20150112
